FAERS Safety Report 5919691-9 (Version None)
Quarter: 2008Q4

REPORT INFORMATION
  Report Type: 
  Country: None (occurrence: None)
  Receive Date: 20081010
  Receipt Date: 20080930
  Transmission Date: 20090506
  Serious: Yes (Hospitalization)
  Sender: FDA-Public Use
  Company Number: JP-1167407

PATIENT
  Age: 55 Year
  Sex: Female

DRUGS (1)
  1. FLUORESCITE (FLUORESCEIN SODIUM) 10 % INJECTION LOT # IM0735A SOLUTION [Suspect]
     Indication: ANGIOGRAM RETINA
     Dosage: 500 MG
     Route: 040
     Dates: start: 20080823, end: 20080823

REACTIONS (1)
  - CHILLS [None]
